FAERS Safety Report 22779755 (Version 8)
Quarter: 2025Q1

REPORT INFORMATION
  Report Type: Report from Study
  Country: JP (occurrence: JP)
  Receive Date: 20230803
  Receipt Date: 20250203
  Transmission Date: 20250409
  Serious: Yes (Hospitalization)
  Sender: ABBVIE
  Company Number: JP-ABBVIE-4206182

PATIENT
  Age: 65 Year
  Sex: Male

DRUGS (3)
  1. CARBIDOPA\LEVODOPA [Suspect]
     Active Substance: CARBIDOPA\LEVODOPA
     Indication: Parkinson^s disease
     Route: 050
     Dates: start: 20221024
  2. CARBIDOPA\LEVODOPA [Suspect]
     Active Substance: CARBIDOPA\LEVODOPA
  3. ROTIGOTINE [Concomitant]
     Active Substance: ROTIGOTINE
     Indication: Product used for unknown indication
     Route: 062

REACTIONS (21)
  - Compression fracture [Recovered/Resolved]
  - Coronavirus infection [Unknown]
  - Bradykinesia [Unknown]
  - Musculoskeletal stiffness [Unknown]
  - Product use issue [Unknown]
  - Medical device site pain [Unknown]
  - Mobility decreased [Unknown]
  - Pain [Unknown]
  - Salivary hypersecretion [Unknown]
  - Malaise [Unknown]
  - On and off phenomenon [Not Recovered/Not Resolved]
  - Speech disorder [Unknown]
  - Stoma site discharge [Unknown]
  - Insomnia [Unknown]
  - Stoma site pain [Unknown]
  - Intentional device misuse [Unknown]
  - Wrong technique in device usage process [Unknown]
  - Mobility decreased [Unknown]
  - Somnolence [Unknown]
  - Stoma site erythema [Unknown]
  - Device issue [Unknown]

NARRATIVE: CASE EVENT DATE: 20221101
